FAERS Safety Report 9363051 (Version 3)
Quarter: 2013Q3

REPORT INFORMATION
  Report Type: Spontaneous
  Country: US (occurrence: US)
  Receive Date: 20130624
  Receipt Date: 20130729
  Transmission Date: 20140515
  Serious: No
  Sender: FDA-Public Use
  Company Number: US-PFIZER INC-2013187035

PATIENT
  Age: 56 Year
  Sex: Female

DRUGS (4)
  1. ENBREL [Suspect]
     Dosage: 25 MG, UNK
  2. XELJANZ [Suspect]
     Dosage: UNK
  3. PREDNISONE [Concomitant]
     Dosage: 20 MG, UNK
  4. TYLENOL [Concomitant]
     Dosage: 325 MG, UNK

REACTIONS (7)
  - Hypoaesthesia [Unknown]
  - Weight fluctuation [Unknown]
  - Breast tenderness [Unknown]
  - Sinusitis [Unknown]
  - Vulvovaginal mycotic infection [Unknown]
  - Paraesthesia [Unknown]
  - Drug hypersensitivity [Unknown]
